FAERS Safety Report 6021155-1 (Version None)
Quarter: 2008Q4

REPORT INFORMATION
  Report Type: 
  Country: None (occurrence: None)
  Receive Date: 20081229
  Receipt Date: 20081215
  Transmission Date: 20090506
  Serious: Yes (Death)
  Sender: FDA-Public Use
  Company Number: US-PFIZER INC-2008154239

PATIENT
  Age: 47 Year
  Sex: Female

DRUGS (5)
  1. ALPRAZOLAM [Suspect]
     Route: 048
  2. METHADONE HCL [Suspect]
     Route: 048
  3. OXYCODONE [Suspect]
     Route: 048
  4. ZOLPIDEM TARTRATE [Suspect]
     Route: 048
  5. ANTIHISTAMINES [Suspect]
     Route: 048

REACTIONS (1)
  - DEATH [None]
